FAERS Safety Report 8433768-8 (Version None)
Quarter: 2012Q2

REPORT INFORMATION
  Report Type: 
  Country: None (occurrence: None)
  Receive Date: 20120613
  Receipt Date: 20120608
  Transmission Date: 20120825
  Serious: Yes (Other)
  Sender: FDA-Public Use
  Company Number: BR-PFIZER INC-2012139641

PATIENT
  Age: 78 Year
  Sex: Male

DRUGS (1)
  1. CARDURA [Suspect]
     Dosage: 4 MG, 1X/DAY (ONE TABLET)
     Route: 048
     Dates: start: 20020101

REACTIONS (2)
  - UNEVALUABLE EVENT [None]
  - CATARACT [None]
